FAERS Safety Report 11432427 (Version 2)
Quarter: 2015Q4

REPORT INFORMATION
  Report Type: Report from Study
  Country: JP (occurrence: JP)
  Receive Date: 20150828
  Receipt Date: 20151008
  Transmission Date: 20160304
  Serious: Yes (Death, Other)
  Sender: FDA-Public Use
  Company Number: JP-AMGEN-JPNCT2015088866

PATIENT
  Age: 72 Year
  Sex: Male
  Weight: 34 kg

DRUGS (40)
  1. UROMITEXAN [Suspect]
     Active Substance: MESNA
     Indication: LYMPHOMA
     Dosage: UNK
     Route: 042
  2. BAKTAR [Concomitant]
     Active Substance: SULFAMETHOXAZOLE\TRIMETHOPRIM
     Indication: PROPHYLAXIS
     Dosage: UNK
     Route: 048
  3. PROHEPARUM [Concomitant]
     Active Substance: CHOLINE BITARTRATE\CYSTEINE\INOSITOL\MAMMAL LIVER
     Indication: LIVER DISORDER
     Dosage: UNK
     Route: 048
  4. SAXIZON [Concomitant]
     Active Substance: HYDROCORTISONE SODIUM SUCCINATE
     Indication: PROPHYLAXIS
     Dosage: UNK
     Route: 065
  5. LIVERES                            /01370401/ [Concomitant]
     Indication: LIVER DISORDER
     Dosage: UNK
     Route: 065
  6. LASIX [Suspect]
     Active Substance: FUROSEMIDE
     Indication: PROPHYLAXIS
     Dosage: UNK
     Route: 042
  7. MEDLENIK [Concomitant]
     Active Substance: CUPRIC SULFATE\FERRIC CHLORIDE\MANGANESE CHLORIDE\POTASSIUM IODIDE\ZINC SULFATE
     Indication: PROPHYLAXIS
     Dosage: UNK
     Route: 042
  8. BIOFERMIN                          /01617201/ [Concomitant]
     Active Substance: BACILLUS SUBTILIS\LACTOBACILLUS ACIDOPHILUS\STREPTOCOCCUS FAECAIS
     Indication: PROPHYLAXIS
     Dosage: UNK
     Route: 048
  9. TATHION [Concomitant]
     Indication: LIVER DISORDER
     Dosage: UNK
     Route: 065
  10. HUMULIN R [Concomitant]
     Active Substance: INSULIN HUMAN
     Indication: DIABETES MELLITUS
     Dosage: UNK
     Route: 065
  11. PREDONINE [Concomitant]
     Active Substance: PREDNISOLONE\PREDNISOLONE ACETATE\PREDNISOLONE SODIUM SUCCINATE
     Indication: LIVER DISORDER
     Dosage: UNK
     Route: 065
  12. EMEND [Concomitant]
     Active Substance: APREPITANT
     Indication: PROPHYLAXIS
     Dosage: UNK
     Route: 048
  13. NAIXAN                             /00256201/ [Suspect]
     Active Substance: NAPROXEN
     Indication: PRODUCT USED FOR UNKNOWN INDICATION
     Dosage: UNK
     Route: 048
  14. CLARITH [Concomitant]
     Active Substance: CLARITHROMYCIN
     Indication: IMMUNE THROMBOCYTOPENIC PURPURA
     Dosage: 400 MG, UNK
     Route: 048
     Dates: start: 20150615, end: 20150621
  15. SELBEX [Concomitant]
     Active Substance: TEPRENONE
     Indication: PROPHYLAXIS
     Dosage: UNK
     Route: 048
  16. NEXIUM [Concomitant]
     Active Substance: ESOMEPRAZOLE MAGNESIUM
     Indication: PROPHYLAXIS
     Dosage: UNK
     Route: 048
  17. VEPESID [Concomitant]
     Active Substance: ETOPOSIDE
     Indication: LYMPHOMA
     Dosage: UNK
     Route: 041
  18. ALOXI [Suspect]
     Active Substance: PALONOSETRON HYDROCHLORIDE
     Indication: LYMPHOMA
     Dosage: UNK
     Route: 041
  19. ENDOXAN                            /00021101/ [Suspect]
     Active Substance: CYCLOPHOSPHAMIDE
     Indication: LYMPHOMA
     Dosage: UNK
     Route: 065
  20. CALCICOL [Concomitant]
     Active Substance: CALCIUM GLUCONATE
     Indication: PROPHYLAXIS
     Dosage: UNK
     Route: 042
  21. GLYCYRON                           /00466401/ [Concomitant]
     Indication: LIVER DISORDER
     Dosage: UNK
     Route: 048
  22. FLUCONAZOLE. [Concomitant]
     Active Substance: FLUCONAZOLE
     Indication: PROPHYLAXIS
     Dosage: UNK
     Route: 048
  23. POLAPREZINC [Concomitant]
     Active Substance: POLAPREZINC
     Indication: PROPHYLAXIS
     Dosage: UNK
     Route: 048
  24. BIOFERMIN R [Concomitant]
     Active Substance: BACILLUS SUBTILIS\LACTOBACILLUS ACIDOPHILUS\STREPTOCOCCUS FAECAIS
     Indication: PROPHYLAXIS
     Dosage: UNK
     Route: 048
  25. KENKETSU GLOVENIN I NICHIYAKU [Concomitant]
     Indication: LYMPHOMA
     Dosage: UNK
     Route: 042
  26. SAWACILLIN [Concomitant]
     Active Substance: AMOXICILLIN
     Indication: IMMUNE THROMBOCYTOPENIC PURPURA
     Dosage: 1500 MG, UNK
     Route: 048
     Dates: start: 20150615, end: 20150621
  27. LANSOPRAZOLE. [Concomitant]
     Active Substance: LANSOPRAZOLE
     Indication: IMMUNE THROMBOCYTOPENIC PURPURA
     Dosage: 60 MG, UNK
     Route: 048
     Dates: start: 20150615, end: 20150621
  28. KCL CORRECTIVE [Concomitant]
     Indication: PROPHYLAXIS
     Dosage: UNK
     Route: 065
  29. HISHIPHAGEN C [Concomitant]
     Indication: LIVER DISORDER
     Dosage: UNK
     Route: 042
  30. DEXART [Concomitant]
     Active Substance: DEXAMETHASONE SODIUM PHOSPHATE
     Indication: PROPHYLAXIS
     Dosage: UNK
     Route: 065
  31. ROMIPLOSTIM - KHK [Suspect]
     Active Substance: ROMIPLOSTIM
     Indication: IMMUNE THROMBOCYTOPENIC PURPURA
     Dosage: 7.1 MUG/KG, QWK
     Route: 058
     Dates: start: 20150420, end: 20150713
  32. ONCOVIN [Suspect]
     Active Substance: VINCRISTINE SULFATE
     Indication: LYMPHOMA
     Dosage: UNK
     Route: 042
  33. DIAMOX                             /00016901/ [Concomitant]
     Active Substance: ACETAZOLAMIDE
     Indication: LYMPHOMA
     Dosage: UNK
     Route: 065
  34. ALBUMIN [Concomitant]
     Active Substance: ALBUMIN (HUMAN)
     Indication: PROPHYLAXIS
     Dosage: UNK
     Route: 042
  35. DOXORUBICIN HYDROCHLORIDE. [Suspect]
     Active Substance: DOXORUBICIN HYDROCHLORIDE
     Indication: LYMPHOMA
     Dosage: UNK
     Route: 042
  36. FILGRASTIM [Concomitant]
     Active Substance: FILGRASTIM
     Indication: PROPHYLAXIS
     Dosage: UNK
     Route: 065
  37. OMEPRAZOLE. [Concomitant]
     Active Substance: OMEPRAZOLE
     Indication: PROPHYLAXIS
     Dosage: UNK
     Route: 042
  38. SOLU-MEDROL [Concomitant]
     Active Substance: METHYLPREDNISOLONE SODIUM SUCCINATE
     Indication: PROPHYLAXIS
     Dosage: UNK
     Route: 042
  39. GOODMIN [Concomitant]
     Active Substance: BROTIZOLAM
     Indication: INSOMNIA
     Dosage: UNK
     Route: 048
  40. VALACICLOVIR [Concomitant]
     Active Substance: VALACYCLOVIR HYDROCHLORIDE
     Indication: PROPHYLAXIS
     Dosage: UNK
     Route: 048

REACTIONS (12)
  - Blood creatinine increased [Not Recovered/Not Resolved]
  - Rash [Recovered/Resolved]
  - Neutrophil count decreased [Recovered/Resolved]
  - Renal impairment [Not Recovered/Not Resolved]
  - Blood calcium increased [Recovered/Resolved]
  - Febrile neutropenia [Recovered/Resolved]
  - Blood urea increased [Not Recovered/Not Resolved]
  - Diarrhoea [Not Recovered/Not Resolved]
  - White blood cell count decreased [Recovered/Resolved]
  - Lymphoma [Fatal]
  - Herpes virus infection [Recovered/Resolved]
  - Blood uric acid increased [Not Recovered/Not Resolved]

NARRATIVE: CASE EVENT DATE: 20150427
